FAERS Safety Report 8358293-4 (Version None)
Quarter: 2012Q2

REPORT INFORMATION
  Report Type: 
  Country: None (occurrence: None)
  Receive Date: 20120514
  Receipt Date: 20120504
  Transmission Date: 20120825
  Serious: Yes (Other)
  Sender: FDA-Public Use
  Company Number: US-ABBOTT-12P-163-0931196-00

PATIENT
  Sex: Male
  Weight: 88.984 kg

DRUGS (9)
  1. ACETAMINOPHEN [Concomitant]
     Indication: RHEUMATOID ARTHRITIS
  2. CELEBREX [Concomitant]
     Indication: RHEUMATOID ARTHRITIS
  3. POTASSIUM CHLORIDE [Concomitant]
     Indication: MINERAL SUPPLEMENTATION
  4. SIMVASTATIN [Concomitant]
     Indication: BLOOD CHOLESTEROL INCREASED
  5. PREDNISONE [Concomitant]
     Indication: RHEUMATOID ARTHRITIS
  6. METHOTREXATE [Concomitant]
     Indication: RHEUMATOID ARTHRITIS
  7. FOLIC ACID [Concomitant]
     Indication: VITAMIN SUPPLEMENTATION
  8. ZOFRAN [Concomitant]
     Indication: CHEMOTHERAPY
  9. HUMIRA [Suspect]
     Indication: RHEUMATOID ARTHRITIS
     Dates: start: 20080101, end: 20120201

REACTIONS (9)
  - ANAEMIA [None]
  - LYMPHADENOPATHY [None]
  - NON-HODGKIN'S LYMPHOMA [None]
  - WEIGHT DECREASED [None]
  - LUNG NEOPLASM [None]
  - PULMONARY MASS [None]
  - MALAISE [None]
  - METASTATIC NEOPLASM [None]
  - HAEMOGLOBIN DECREASED [None]
